FAERS Safety Report 20524448 (Version 3)
Quarter: 2022Q3

REPORT INFORMATION
  Report Type: Spontaneous
  Country: US (occurrence: US)
  Receive Date: 20220228
  Receipt Date: 20220912
  Transmission Date: 20221027
  Serious: No
  Sender: FDA-Public Use
  Company Number: US-SA-SAC20220223000093

PATIENT
  Age: 11 Year
  Sex: Female

DRUGS (1)
  1. DUPIXENT [Suspect]
     Active Substance: DUPILUMAB
     Indication: Dermatitis atopic
     Dosage: 200 MG,OTHER
     Route: 058
     Dates: start: 20211202

REACTIONS (4)
  - Eczema [Unknown]
  - Drug hypersensitivity [Unknown]
  - Rash [Unknown]
  - Off label use of device [Unknown]

NARRATIVE: CASE EVENT DATE: 20220221
